FAERS Safety Report 4657264-9 (Version None)
Quarter: 2005Q2

REPORT INFORMATION
  Report Type: 
  Country: None (occurrence: None)
  Receive Date: 20050506
  Receipt Date: 20050421
  Transmission Date: 20051028
  Serious: Yes (Hospitalization, Disabling)
  Sender: FDA-Public Use
  Company Number: 2005064270

PATIENT
  Age: 56 Year
  Sex: Female
  Weight: 172.3669 kg

DRUGS (14)
  1. BEXTRA [Suspect]
     Indication: ARTHRALGIA
     Dosage: 10 MG (10 MG, 1 IN 1 D), ORAL
     Route: 048
     Dates: start: 20000101
  2. ALL OTHER NON-THERAPEUTIC PRODUCTS (ALL OTHER NON-THERAPEUTIC PRODUCTS [Suspect]
     Indication: ILL-DEFINED DISORDER
  3. SERETIDE MITE (FLUTICASONE PROPIONATE, SALMETEROL XINAFOATE) [Concomitant]
  4. LEVOTHYROXINE SODIUM [Concomitant]
  5. AMITRIPTYLINE HCL [Concomitant]
  6. GLIPIZIDE [Concomitant]
  7. PREDNISONE [Concomitant]
  8. COLCHICINE (COLCHICINE) [Concomitant]
  9. POTASSIUM ACETATE [Concomitant]
  10. SERTRALINE HCL [Concomitant]
  11. COMBIVENT [Concomitant]
  12. FUROSEMIDE [Concomitant]
  13. METFORMIN HCL [Concomitant]
  14. LANSOPRAZOLE [Concomitant]

REACTIONS (6)
  - ALOPECIA [None]
  - FOOD ALLERGY [None]
  - GASTRIC ULCER HAEMORRHAGE [None]
  - INFECTED SKIN ULCER [None]
  - MYOCARDIAL INFARCTION [None]
  - RASH VESICULAR [None]
